FAERS Safety Report 6701595-5 (Version None)
Quarter: 2010Q2

REPORT INFORMATION
  Report Type: 
  Country: None (occurrence: None)
  Receive Date: 20100429
  Receipt Date: 20100419
  Transmission Date: 20101027
  Serious: Yes (Hospitalization, Other)
  Sender: FDA-Public Use
  Company Number: US-ELI_LILLY_AND_COMPANY-US201004005910

PATIENT
  Age: 65 Year
  Sex: Female

DRUGS (3)
  1. BYETTA [Suspect]
     Dosage: 10 UG, UNK
  2. LIPITOR [Concomitant]
  3. METFORMIN [Concomitant]

REACTIONS (1)
  - PANCREATITIS [None]
